FAERS Safety Report 4343497-8 (Version None)
Quarter: 2004Q2

REPORT INFORMATION
  Report Type: 
  Country: None (occurrence: None)
  Receive Date: 20040422
  Receipt Date: 20030905
  Transmission Date: 20050107
  Serious: Yes (Other)
  Sender: FDA-Public Use
  Company Number: PHEH2003US08212

PATIENT
  Age: 23 Year
  Sex: Male

DRUGS (3)
  1. CLOZARIL [Suspect]
     Indication: SCHIZOAFFECTIVE DISORDER
     Dosage: 300 MG/DAY
     Route: 048
  2. CLOZARIL [Suspect]
     Dosage: 250 MG, QHS
     Dates: start: 20021101
  3. DEPAKOTE [Concomitant]

REACTIONS (6)
  - LUNG NEOPLASM [None]
  - LYMPHADENECTOMY [None]
  - METASTATIC NEOPLASM [None]
  - ORCHIDECTOMY [None]
  - PROCEDURAL COMPLICATION [None]
  - TESTIS CANCER [None]
